FAERS Safety Report 10530373 (Version 1)
Quarter: 2014Q4

REPORT INFORMATION
  Report Type: Spontaneous
  Country: AU (occurrence: AU)
  Receive Date: 20141021
  Receipt Date: 20141021
  Transmission Date: 20150528
  Serious: Yes (Other)
  Sender: FDA-Public Use
  Company Number: AU-MYLANLABS-2014M1007066

PATIENT

DRUGS (7)
  1. TEMAZE [Suspect]
     Active Substance: TEMAZEPAM
     Indication: INSOMNIA
     Dosage: 2 DF, QD
  2. AXIT 15 [Suspect]
     Active Substance: MIRTAZAPINE
     Indication: ANXIETY
     Dosage: 30 MG, QD
  3. CORTISONE [Concomitant]
     Active Substance: CORTISONE\HYDROCORTISONE
     Indication: PRODUCT USED FOR UNKNOWN INDICATION
     Dosage: UNK
  4. AXIT 15 [Suspect]
     Active Substance: MIRTAZAPINE
     Dosage: 15 MG, QD
  5. SUSTAGEN [Concomitant]
     Indication: PRODUCT USED FOR UNKNOWN INDICATION
     Dosage: UNK
  6. VALIUM [Concomitant]
     Active Substance: DIAZEPAM
     Indication: ANXIETY
     Dosage: 1.5 DF, QD
  7. VALIUM [Concomitant]
     Active Substance: DIAZEPAM
     Dosage: 0.5 DF, QD

REACTIONS (12)
  - Weight decreased [Not Recovered/Not Resolved]
  - Dry mouth [Not Recovered/Not Resolved]
  - Insomnia [Not Recovered/Not Resolved]
  - Femur fracture [Not Recovered/Not Resolved]
  - Paraesthesia [Not Recovered/Not Resolved]
  - Decreased appetite [Not Recovered/Not Resolved]
  - Paraesthesia oral [Not Recovered/Not Resolved]
  - Road traffic accident [Not Recovered/Not Resolved]
  - Dizziness [Not Recovered/Not Resolved]
  - Sleep talking [Not Recovered/Not Resolved]
  - Road traffic accident [None]
  - Fall [Not Recovered/Not Resolved]

NARRATIVE: CASE EVENT DATE: 201405
